FAERS Safety Report 14044149 (Version 2)
Quarter: 2017Q4

REPORT INFORMATION
  Report Type: Spontaneous
  Country: FR (occurrence: FR)
  Receive Date: 20171004
  Receipt Date: 20171009
  Transmission Date: 20180321
  Serious: Yes (Life-Threatening, Hospitalization, Other)
  Sender: FDA-Public Use
  Company Number: FR-ALLERGAN-1756083US

PATIENT
  Age: 76 Year
  Sex: Female

DRUGS (4)
  1. OPTRUMA [Suspect]
     Active Substance: RALOXIFENE HYDROCHLORIDE
     Indication: OSTEOPOROSIS POSTMENOPAUSAL
     Dosage: 60 MG, QD
     Route: 065
     Dates: end: 201707
  2. MAGNE B6 [Concomitant]
     Active Substance: MAGNESIUM\PYRIDOXINE
     Indication: PRODUCT USED FOR UNKNOWN INDICATION
     Route: 065
  3. DOLIPRANE [Concomitant]
     Active Substance: ACETAMINOPHEN
     Indication: PRODUCT USED FOR UNKNOWN INDICATION
     Route: 065
  4. GANFORT [Suspect]
     Active Substance: BIMATOPROST\TIMOLOL
     Indication: OCULAR HYPERTENSION
     Dosage: 1 GTT, QD
     Route: 047

REACTIONS (9)
  - Blood pressure increased [Recovered/Resolved]
  - Subarachnoid haemorrhage [Unknown]
  - Brain stem haemorrhage [Unknown]
  - Malaise [Unknown]
  - Muscular weakness [Unknown]
  - Disorientation [Unknown]
  - Dysarthria [Unknown]
  - Ischaemic stroke [Recovering/Resolving]
  - Atrial fibrillation [Not Recovered/Not Resolved]

NARRATIVE: CASE EVENT DATE: 20170726
